FAERS Safety Report 11934952 (Version 1)
Quarter: 2016Q1

REPORT INFORMATION
  Report Type: Spontaneous
  Country: US (occurrence: US)
  Receive Date: 20160121
  Receipt Date: 20160121
  Transmission Date: 20160526
  Serious: No
  Sender: FDA-Public Use
  Company Number: US-JNJFOC-20151219784

PATIENT
  Sex: Female

DRUGS (4)
  1. ULTRAM [Suspect]
     Active Substance: TRAMADOL HYDROCHLORIDE
     Indication: PAIN
     Dosage: 2 IN THE MORNING AND 1 IN THE EVENING
     Route: 065
  2. ULTRAM [Suspect]
     Active Substance: TRAMADOL HYDROCHLORIDE
     Indication: ANXIETY
     Dosage: 2 IN THE MORNING AND 1 IN THE EVENING
     Route: 065
  3. ULTRAM [Suspect]
     Active Substance: TRAMADOL HYDROCHLORIDE
     Indication: ANXIETY
     Dosage: 4-8 50 MG TRAMADOL PER DAY
     Route: 065
  4. ULTRAM [Suspect]
     Active Substance: TRAMADOL HYDROCHLORIDE
     Indication: PAIN
     Dosage: 4-8 50 MG TRAMADOL PER DAY
     Route: 065

REACTIONS (10)
  - Restlessness [Unknown]
  - Poor quality sleep [Unknown]
  - Sneezing [Unknown]
  - Pyrexia [Unknown]
  - Apathy [Unknown]
  - Hyperhidrosis [Unknown]
  - Paraesthesia [Unknown]
  - Exposure during pregnancy [Unknown]
  - Nervousness [Unknown]
  - Chills [Unknown]
